FAERS Safety Report 13244600 (Version 1)
Quarter: 2017Q1

REPORT INFORMATION
  Report Type: Report from Study
  Country: None (occurrence: HU)
  Receive Date: 20170217
  Receipt Date: 20170217
  Transmission Date: 20170428
  Serious: Yes (Hospitalization)
  Sender: FDA-Public Use
  Company Number: HU-ABBVIE-16K-076-1704839-00

PATIENT
  Age: 75 Year
  Sex: Male

DRUGS (6)
  1. MIRVEDOL [Concomitant]
     Indication: DEMENTIA ALZHEIMER^S TYPE
     Route: 048
  2. DUODOPA [Suspect]
     Active Substance: CARBIDOPA\LEVODOPA
     Indication: PARKINSON^S DISEASE
     Dosage: MORNING DOSE 7.0ML; CONTINUOUS DOSE 4.8ML/H; EXTRA DOSE 1ML
     Route: 050
     Dates: start: 201210, end: 2012
  3. ULPRIX [Concomitant]
     Active Substance: PANTOPRAZOLE SODIUM
     Indication: HYPERCHLORHYDRIA
     Dosage: 1 TABLET IN THE EVENING
     Route: 048
  4. DUODOPA [Suspect]
     Active Substance: CARBIDOPA\LEVODOPA
     Dosage: MORNING DOSE 7ML; CONTINUOUS DOSE 4.2ML/H; EXTRA DOSE 1ML
     Route: 050
     Dates: start: 2012
  5. UROXAL [Concomitant]
     Indication: URINARY TRACT DISORDER
     Dosage: 1 TABLET IN THE MORNING
     Route: 048
  6. DUODOPA [Suspect]
     Active Substance: CARBIDOPA\LEVODOPA
     Dosage: MORNING DOSE 7ML; CONTINUOUS DOSE 4.8ML/H; EXTRA DOSE 1ML
     Route: 050

REACTIONS (16)
  - Lower limb fracture [Not Recovered/Not Resolved]
  - General physical health deterioration [Recovering/Resolving]
  - Hyperkinesia [Recovering/Resolving]
  - Knee deformity [Not Recovered/Not Resolved]
  - Hallucination [Not Recovered/Not Resolved]
  - Stoma site discharge [Not Recovered/Not Resolved]
  - Fall [Not Recovered/Not Resolved]
  - Stoma site hypergranulation [Not Recovered/Not Resolved]
  - Wound [Unknown]
  - On and off phenomenon [Recovering/Resolving]
  - Gastrointestinal stoma complication [Unknown]
  - Device dislocation [Not Recovered/Not Resolved]
  - Blood pressure fluctuation [Not Recovered/Not Resolved]
  - Dyskinesia [Recovering/Resolving]
  - Gait disturbance [Not Recovered/Not Resolved]
  - Dementia [Unknown]

NARRATIVE: CASE EVENT DATE: 20160807
